FAERS Safety Report 19490591 (Version 1)
Quarter: 2021Q3

REPORT INFORMATION
  Report Type: Spontaneous
  Country: SE (occurrence: SE)
  Receive Date: 20210705
  Receipt Date: 20210705
  Transmission Date: 20211014
  Serious: Yes (Other)
  Sender: FDA-Public Use
  Company Number: SE-TEVA-2021-SE-1928653

PATIENT
  Sex: Female

DRUGS (4)
  1. PREDNISOLONE. [Suspect]
     Active Substance: PREDNISOLONE
     Indication: IMMUNOSUPPRESSANT DRUG THERAPY
     Route: 065
     Dates: start: 201906
  2. TACROLIMUS. [Suspect]
     Active Substance: TACROLIMUS
     Indication: IMMUNOSUPPRESSANT DRUG THERAPY
     Route: 065
     Dates: start: 201906
  3. TRAMETINIB [Suspect]
     Active Substance: TRAMETINIB
     Indication: HEPATIC ANGIOSARCOMA
     Route: 065
     Dates: start: 201906
  4. RITUXIMAB. [Suspect]
     Active Substance: RITUXIMAB
     Indication: EPSTEIN-BARR VIRUS ASSOCIATED LYMPHOPROLIFERATIVE DISORDER
     Dosage: RECEIVED WEEKLY DOSES OF RITUXIMAB DURING FOR CONSECUTIVE WEEKS
     Route: 065
     Dates: start: 2020

REACTIONS (1)
  - Viral load increased [Recovering/Resolving]

NARRATIVE: CASE EVENT DATE: 2020
